FAERS Safety Report 5131492-0 (Version None)
Quarter: 2006Q4

REPORT INFORMATION
  Report Type: 
  Country: None (occurrence: None)
  Receive Date: 20061020
  Receipt Date: 20060602
  Transmission Date: 20070319
  Serious: Yes (Hospitalization)
  Sender: FDA-Public Use
  Company Number: US-ROCHE-450539

PATIENT
  Age: 32 Year
  Sex: Female

DRUGS (4)
  1. ACCUTANE [Suspect]
     Route: 065
     Dates: start: 19960615, end: 19970615
  2. ACCUTANE [Suspect]
     Route: 065
     Dates: start: 19990115, end: 19990615
  3. ACCUTANE [Suspect]
     Route: 065
     Dates: start: 20000512
  4. INDERAL [Concomitant]
     Indication: HYPERTENSION

REACTIONS (18)
  - ABSCESS ORAL [None]
  - ANAEMIA [None]
  - ANXIETY [None]
  - ATRIAL FIBRILLATION [None]
  - CARDIAC DISORDER [None]
  - CROHN'S DISEASE [None]
  - ECCHYMOSIS [None]
  - FIBROMYALGIA [None]
  - GOITRE [None]
  - INJURY [None]
  - NIGHT BLINDNESS [None]
  - PROCTITIS [None]
  - PYODERMA GANGRENOSUM [None]
  - RHEUMATOID ARTHRITIS [None]
  - SINUSITIS [None]
  - SKIN LESION [None]
  - SKIN ULCER [None]
  - WOUND NECROSIS [None]
